FAERS Safety Report 6843651-7 (Version None)
Quarter: 2010Q3

REPORT INFORMATION
  Report Type: 
  Country: None (occurrence: None)
  Receive Date: 20100715
  Receipt Date: 20100701
  Transmission Date: 20110219
  Serious: Yes (Disabling)
  Sender: FDA-Public Use
  Company Number: IE-AMGEN-US389582

PATIENT
  Sex: Female
  Weight: 56.8 kg

DRUGS (8)
  1. ENBREL [Suspect]
     Indication: RHEUMATOID ARTHRITIS
     Route: 058
     Dates: start: 20090505, end: 20090702
  2. FOLIC ACID [Concomitant]
     Indication: RHEUMATOID ARTHRITIS
     Route: 048
     Dates: start: 20061214
  3. ISTIN [Concomitant]
     Indication: HYPERTENSION
     Route: 048
     Dates: start: 20070101
  4. OMEPRAZOLE [Concomitant]
     Route: 048
     Dates: start: 20071201
  5. CALCICHEW-D3 [Concomitant]
     Indication: OSTEOPOROSIS
     Route: 048
     Dates: start: 20070101
  6. ACTONEL [Concomitant]
     Indication: OSTEOPOROSIS
     Route: 048
     Dates: start: 20070101
  7. METHOTREXATE [Concomitant]
     Indication: RHEUMATOID ARTHRITIS
     Route: 048
     Dates: start: 20061214
  8. PREDNISOLONE [Concomitant]
     Indication: RHEUMATOID ARTHRITIS
     Route: 048
     Dates: start: 20060101

REACTIONS (1)
  - HEADACHE [None]
